FAERS Safety Report 6185316-3 (Version None)
Quarter: 2009Q2

REPORT INFORMATION
  Report Type: 
  Country: None (occurrence: None)
  Receive Date: 20090511
  Receipt Date: 20090505
  Transmission Date: 20091009
  Serious: Yes (Other)
  Sender: FDA-Public Use
  Company Number: BR-ROCHE-631429

PATIENT
  Sex: Female
  Weight: 67 kg

DRUGS (3)
  1. RIVOTRIL [Suspect]
     Indication: DEPRESSION
     Route: 048
     Dates: start: 20081104
  2. METHYLDOPA [Concomitant]
     Indication: BLOOD PRESSURE
     Route: 048
  3. FLUOXETINE HCL [Concomitant]
     Route: 048

REACTIONS (1)
  - ABORTION SPONTANEOUS [None]
